FAERS Safety Report 4823782-3 (Version None)
Quarter: 2005Q4

REPORT INFORMATION
  Report Type: 
  Country: None (occurrence: None)
  Receive Date: 20051109
  Receipt Date: 20051102
  Transmission Date: 20060501
  Serious: Yes (Hospitalization)
  Sender: FDA-Public Use
  Company Number: FR-ABBOTT-05P-056-0316472-00

PATIENT
  Age: 46 Year
  Sex: Male

DRUGS (4)
  1. HUMIRA [Suspect]
     Indication: RHEUMATOID ARTHRITIS
     Route: 058
  2. HUMIRA [Suspect]
     Indication: POLYARTHRITIS
  3. PREDNISONE [Suspect]
     Indication: POLYARTHRITIS
     Route: 048
  4. LEFLUNOMIDE [Suspect]
     Indication: POLYARTHRITIS
     Route: 048

REACTIONS (3)
  - ANAL FISTULA [None]
  - PERIRECTAL ABSCESS [None]
  - SEPSIS [None]
